FAERS Safety Report 5371642-4 (Version None)
Quarter: 2007Q2

REPORT INFORMATION
  Report Type: 
  Country: None (occurrence: None)
  Receive Date: 20070615
  Receipt Date: 20060804
  Transmission Date: 20071010
  Serious: Yes (Other)
  Sender: FDA-Public Use
  Company Number: 200613266US

PATIENT
  Age: 63 Year
  Sex: Male

DRUGS (15)
  1. LANTUS [Suspect]
     Indication: DIABETES MELLITUS INSULIN-DEPENDENT
     Dosage: 41-45 U
  2. LANTUS [Suspect]
     Indication: DIABETES MELLITUS INSULIN-DEPENDENT
     Dosage: 45 U QD
  3. LANTUS [Suspect]
     Indication: DIABETES MELLITUS INSULIN-DEPENDENT
     Dates: start: 20060324
  4. LANTUS [Suspect]
     Indication: DIABETES MELLITUS INSULIN-DEPENDENT
     Dates: start: 20060324
  5. APIDRA [Suspect]
     Indication: DIABETES MELLITUS INSULIN-DEPENDENT
     Dosage: 5-10 U AC
     Dates: start: 20060326, end: 20060514
  6. CARDIZEM [Concomitant]
  7. PIOGLITAZONE [Concomitant]
  8. ATORVASTATIN CALCIUM              (LIPITOR) [Concomitant]
  9. KLONOPIN [Concomitant]
  10. PROPRANOLOL [Concomitant]
  11. DOXEPIN HCL [Concomitant]
  12. DESLORATADINE [Concomitant]
  13. CODEINE PHOSPHATE, PARACETAMOL      (TYLENOL W/CODEINE NO. 3) [Concomitant]
  14. PARACETAMOL, HYDROCODONE BITARTRATE        (VICODIN) [Concomitant]
  15. PARACETAMOL, OXYCODONE HYDROCHLORIDE   (PERCOCET) [Concomitant]

REACTIONS (2)
  - BLOOD GLUCOSE INCREASED [None]
  - HYPERGLYCAEMIA [None]
